FAERS Safety Report 4430061-5 (Version None)
Quarter: 2004Q3

REPORT INFORMATION
  Report Type: 
  Country: None (occurrence: None)
  Receive Date: 20040820
  Receipt Date: 20040701
  Transmission Date: 20050211
  Serious: Yes (Hospitalization)
  Sender: FDA-Public Use
  Company Number: FR-ROCHE-372743

PATIENT
  Age: 64 Year
  Sex: Female
  Weight: 100 kg

DRUGS (10)
  1. ROCEPHIN [Suspect]
     Indication: ERYSIPELAS
     Route: 030
     Dates: start: 20040413, end: 20040418
  2. LERCANIDIPINE [Suspect]
     Indication: DRUG USE FOR UNKNOWN INDICATION
     Route: 048
     Dates: start: 20040405, end: 20040424
  3. PYOSTACINE [Suspect]
     Indication: ERYSIPELAS
     Route: 048
     Dates: start: 20040419, end: 20040424
  4. NIFEDIPINE [Concomitant]
     Indication: DRUG USE FOR UNKNOWN INDICATION
     Route: 048
     Dates: start: 20040424
  5. CALDINE [Concomitant]
     Route: 048
     Dates: end: 20040505
  6. FENOFIBRATE [Concomitant]
     Dosage: TAKEN IN THE EVENING
     Route: 048
  7. SERETIDE [Concomitant]
     Indication: DRUG USE FOR UNKNOWN INDICATION
     Dosage: IN THE MORNING. REPORTED AS SERETIDE 500.
     Route: 065
  8. EUPHYLLINE [Concomitant]
     Route: 048
  9. RANIPLEX [Concomitant]
     Indication: DRUG USE FOR UNKNOWN INDICATION
     Dosage: IN THE EVENING. REPORTED AS RANIPLEX 300.
     Route: 048
  10. SINGULAIR [Concomitant]
     Indication: DRUG USE FOR UNKNOWN INDICATION
     Dosage: REPORTED AS SINGULAIR 10. TAKEN IN THE EVENING.
     Route: 048

REACTIONS (3)
  - PRURITUS [None]
  - RASH GENERALISED [None]
  - RASH MACULO-PAPULAR [None]
